FAERS Safety Report 4439909-1 (Version None)
Quarter: 2004Q3

REPORT INFORMATION
  Report Type: 
  Country: None (occurrence: None)
  Receive Date: 20040902
  Receipt Date: 20040826
  Transmission Date: 20050211
  Serious: Yes (Life-Threatening, Hospitalization)
  Sender: FDA-Public Use
  Company Number: GB-MERCK-0408GBR00257

PATIENT
  Age: 73 Year
  Sex: Female

DRUGS (9)
  1. ACETAMINOPHEN AND PROPOXYPHENE HYDROCHLORIDE [Concomitant]
     Route: 048
  2. AMILORIDE HYDROCHLORIDE AND FUROSEMIDE [Concomitant]
     Indication: CARDIOVASCULAR DISORDER
     Route: 048
  3. ASPIRIN [Concomitant]
     Indication: CARDIOVASCULAR DISORDER
     Route: 048
  4. ATORVASTATIN CALCIUM [Concomitant]
     Indication: CARDIOVASCULAR DISORDER
     Route: 048
  5. FERROUS SULFATE [Concomitant]
     Indication: ANAEMIA
     Route: 048
  6. FOLIC ACID [Concomitant]
     Route: 048
  7. METHOTREXATE [Suspect]
     Indication: RHEUMATOID ARTHRITIS
     Route: 048
     Dates: start: 20000101, end: 20040701
  8. OMEPRAZOLE [Concomitant]
     Route: 048
  9. VIOXX [Suspect]
     Indication: RHEUMATOID ARTHRITIS
     Route: 048
     Dates: start: 20040601, end: 20040701

REACTIONS (4)
  - DYSPNOEA [None]
  - HYPERHIDROSIS [None]
  - MYALGIA [None]
  - PNEUMONITIS [None]
